FAERS Safety Report 24824291 (Version 1)
Quarter: 2025Q1

REPORT INFORMATION
  Report Type: Spontaneous
  Country: IN (occurrence: None)
  Receive Date: 20250109
  Receipt Date: 20250109
  Transmission Date: 20250408
  Serious: Yes (Hospitalization)
  Sender: UNICHEM
  Company Number: IN-Unichem Pharmaceuticals (USA) Inc-UCM202412-001790

PATIENT
  Age: 30 Year
  Sex: Male

DRUGS (2)
  1. AMLODIPINE [Suspect]
     Active Substance: AMLODIPINE BESYLATE
     Indication: Product used for unknown indication
     Dates: start: 20221230
  2. FLUOXETINE [Concomitant]
     Active Substance: FLUOXETINE HYDROCHLORIDE
     Indication: Product used for unknown indication

REACTIONS (8)
  - Hyperhidrosis [Unknown]
  - Peripheral coldness [Unknown]
  - Chest pain [Unknown]
  - Dizziness [Unknown]
  - Hypotension [Recovered/Resolved]
  - Heart rate increased [Unknown]
  - Overdose [Unknown]
  - Toxicity to various agents [Unknown]
